FAERS Safety Report 13569040 (Version 1)
Quarter: 2017Q2

REPORT INFORMATION
  Report Type: Spontaneous
  Country: CH (occurrence: US)
  Receive Date: 20170522
  Receipt Date: 20170522
  Transmission Date: 20170830
  Serious: Yes (Hospitalization)
  Sender: FDA-Public Use
  Company Number: CH-LPDUSPRD-20170635

PATIENT
  Age: 20 Year
  Sex: Male
  Weight: 115.7 kg

DRUGS (5)
  1. HEPARIN [Concomitant]
     Active Substance: HEPARIN SODIUM
     Dosage: DOSE UNK, INFUSION PUMP
     Route: 042
  2. CALCITRIOL. [Concomitant]
     Active Substance: CALCITRIOL
     Dosage: 6 TOTAL (0.5 MG)
     Route: 048
     Dates: start: 20170427
  3. VENOFER [Suspect]
     Active Substance: IRON SUCROSE
     Dosage: 100 MG, 3 IN 1 WEEK
     Route: 040
     Dates: start: 20170415, end: 20170427
  4. MIRCERA [Suspect]
     Active Substance: METHOXY POLYETHYLENE GLYCOL-EPOETIN BETA
     Dosage: 100 MCG, 2 IN WEEK
     Route: 040
     Dates: start: 20170427, end: 20170427
  5. SODIUM CHLORIDE. [Concomitant]
     Active Substance: SODIUM CHLORIDE
     Dosage: DOSE NOT PROVIDED
     Route: 065
     Dates: start: 20170427

REACTIONS (5)
  - Chills [Unknown]
  - Feeling hot [Unknown]
  - Body temperature increased [Unknown]
  - Heart rate increased [Unknown]
  - Blood pressure increased [Unknown]

NARRATIVE: CASE EVENT DATE: 20170427
